FAERS Safety Report 7550227-5 (Version None)
Quarter: 2011Q2

REPORT INFORMATION
  Report Type: 
  Country: None (occurrence: None)
  Receive Date: 20110615
  Receipt Date: 20110602
  Transmission Date: 20111010
  Serious: Yes (Hospitalization)
  Sender: FDA-Public Use
  Company Number: GB-JNJFOC-20110601631

PATIENT
  Age: 62 Year
  Sex: Female

DRUGS (3)
  1. STEROIDS NOS [Concomitant]
  2. REMICADE [Suspect]
     Indication: RHEUMATOID ARTHRITIS
     Route: 042
     Dates: start: 20050110
  3. METHOTREXATE [Concomitant]
     Dates: start: 19921101

REACTIONS (2)
  - CELLULITIS [None]
  - MYOCARDIAL INFARCTION [None]
